FAERS Safety Report 19214543 (Version 1)
Quarter: 2021Q2

REPORT INFORMATION
  Report Type: Spontaneous
  Country: ES (occurrence: ES)
  Receive Date: 20210505
  Receipt Date: 20210505
  Transmission Date: 20210717
  Serious: Yes (Other)
  Sender: FDA-Public Use
  Company Number: ES-UCBSA-2021019426

PATIENT
  Age: 39 Year
  Sex: Female

DRUGS (11)
  1. LEVODOPA/BENSERAZIDE [Concomitant]
     Active Substance: BENSERAZIDE\LEVODOPA
     Indication: PRODUCT USED FOR UNKNOWN INDICATION
     Dosage: 100 MILLIGRAM, 3X/DAY (TID)
     Dates: start: 2016, end: 202001
  2. NEUPRO [Suspect]
     Active Substance: ROTIGOTINE
     Dosage: 10 MILLIGRAM, UNK (8+2 MILLIGRAM)
     Route: 062
     Dates: start: 201510, end: 201601
  3. NEUPRO [Suspect]
     Active Substance: ROTIGOTINE
     Dosage: 4 MILLIGRAM, UNK
     Route: 062
     Dates: start: 201608
  4. AMITRIPTYLINE [Concomitant]
     Active Substance: AMITRIPTYLINE
     Indication: PRODUCT USED FOR UNKNOWN INDICATION
     Dosage: 10 MILLIGRAM, ONCE DAILY (QD)
     Dates: start: 201510
  5. NEUPRO [Suspect]
     Active Substance: ROTIGOTINE
     Indication: PARKINSON^S DISEASE
     Dosage: 4 MILLIGRAM, UNK
     Route: 062
     Dates: start: 2014, end: 201510
  6. LEVODOPA/CARBIDOPA/ENTACAPONE [Concomitant]
     Active Substance: CARBIDOPA\ENTACAPONE\LEVODOPA
     Indication: PRODUCT USED FOR UNKNOWN INDICATION
     Dosage: 125 MILLIGRAM, 4X/DAY (QID)
     Dates: start: 202104
  7. RASAGILINE. [Concomitant]
     Active Substance: RASAGILINE
     Indication: PRODUCT USED FOR UNKNOWN INDICATION
     Dosage: 1 MILLIGRAM, UNK
     Dates: start: 201510
  8. MELATONIN [Concomitant]
     Active Substance: MELATONIN
     Indication: PRODUCT USED FOR UNKNOWN INDICATION
     Dosage: UNK
     Dates: start: 201510
  9. SAFINAMIDA [Concomitant]
     Dosage: 100 UNK, UNK
     Dates: start: 2016, end: 202001
  10. NEUPRO [Suspect]
     Active Substance: ROTIGOTINE
     Dosage: 12 MILLIGRAM, UNK (8+4 MILLIGRAM)
     Route: 062
     Dates: start: 201601, end: 201603
  11. NEUPRO [Suspect]
     Active Substance: ROTIGOTINE
     Dosage: 12 MILLIGRAM, UNK (8+4 MILLIGRAM)
     Route: 062
     Dates: start: 2016, end: 2021

REACTIONS (17)
  - Tremor [Unknown]
  - Insomnia [Unknown]
  - Motor dysfunction [Recovering/Resolving]
  - Urinary tract disorder [Recovered/Resolved]
  - Intermenstrual bleeding [Unknown]
  - Hypertension [Recovering/Resolving]
  - Balance disorder [Unknown]
  - Gait disturbance [Unknown]
  - Menopause [Recovered/Resolved]
  - Anaemia [Unknown]
  - Akinesia [Recovered/Resolved]
  - On and off phenomenon [Unknown]
  - Dystonia [Unknown]
  - Hormone level abnormal [Unknown]
  - Muscle rigidity [Unknown]
  - Therapeutic response shortened [Unknown]
  - Maternal exposure before pregnancy [Unknown]

NARRATIVE: CASE EVENT DATE: 2015
